FAERS Safety Report 21083800 (Version 1)
Quarter: 2022Q3

REPORT INFORMATION
  Report Type: Spontaneous
  Country: US (occurrence: US)
  Receive Date: 20220714
  Receipt Date: 20220714
  Transmission Date: 20221026
  Serious: No
  Sender: FDA-Public Use
  Company Number: US-JAZZ-2022-US-012969

PATIENT
  Sex: Male
  Weight: 73.469 kg

DRUGS (1)
  1. EPIDIOLEX [Suspect]
     Active Substance: CANNABIDIOL
     Indication: Severe myoclonic epilepsy of infancy
     Dosage: 14 MILLILITER
     Route: 048
     Dates: start: 201904

REACTIONS (2)
  - Seizure [Unknown]
  - Head injury [Unknown]
